FAERS Safety Report 6929077-6 (Version None)
Quarter: 2010Q3

REPORT INFORMATION
  Report Type: 
  Country: None (occurrence: None)
  Receive Date: 20100811
  Receipt Date: 20100730
  Transmission Date: 20110219
  Serious: Yes (Other)
  Sender: FDA-Public Use
  Company Number: FKO201000303

PATIENT
  Age: 36 Year
  Sex: Male

DRUGS (5)
  1. DACARBAZINE [Suspect]
     Indication: HODGKIN'S DISEASE
     Dosage: (375 MG/M2, 2 HR INFUSION) INTRAVENOUS DRIP
     Route: 041
  2. BLEOMYCIN (MANUFACTURER UNKNOWN) (BLEOMYCIN) (BLEOMYCIN) [Suspect]
     Indication: HODGKIN'S DISEASE
     Dosage: (9 MG/M2, 30 MIN INFUSION) INTRAVENOUS DRIP
     Route: 041
  3. ADRIAMYCIN PFS [Concomitant]
  4. VINBLASTINE (VINBLASTINE) (VINBLASTINE) [Concomitant]
  5. ONDANSETRON [Concomitant]

REACTIONS (13)
  - ANAPHYLACTIC SHOCK [None]
  - BLOOD PRESSURE SYSTOLIC DECREASED [None]
  - BODY TEMPERATURE INCREASED [None]
  - CHILLS [None]
  - CONTINUOUS HAEMODIAFILTRATION [None]
  - CYTOKINE STORM [None]
  - HYPERKALAEMIA [None]
  - HYPOTENSION [None]
  - INFUSION SITE PAIN [None]
  - LOSS OF CONSCIOUSNESS [None]
  - PYREXIA [None]
  - TONIC CONVULSION [None]
  - TUMOUR LYSIS SYNDROME [None]
